FAERS Safety Report 7506505-9 (Version None)
Quarter: 2011Q2

REPORT INFORMATION
  Report Type: 
  Country: None (occurrence: None)
  Receive Date: 20110526
  Receipt Date: 20110512
  Transmission Date: 20111010
  Serious: Yes (Life-Threatening, Hospitalization)
  Sender: FDA-Public Use
  Company Number: US-BAYER-201017012NA

PATIENT
  Age: 42 Year
  Sex: Female
  Weight: 93.787 kg

DRUGS (6)
  1. YAZ [Suspect]
     Indication: PREMENSTRUAL SYNDROME
     Route: 048
     Dates: start: 20070318, end: 20070430
  2. YAZ [Suspect]
     Indication: DYSFUNCTIONAL UTERINE BLEEDING
  3. ZOLOFT [Concomitant]
     Indication: DEPRESSION
  4. NSAID'S [Concomitant]
     Dosage: UNK
  5. ATENOLOL [Concomitant]
     Dosage: 50 MG, UNK
  6. ZOLOFT [Concomitant]
     Indication: ANXIETY
     Dosage: DAILY DOSE 50 MG
     Dates: start: 20000101

REACTIONS (7)
  - CHEST PAIN [None]
  - ANAEMIA [None]
  - PULMONARY INFARCTION [None]
  - VAGINAL HAEMORRHAGE [None]
  - PULMONARY EMBOLISM [None]
  - DYSPNOEA [None]
  - DEEP VEIN THROMBOSIS [None]
